FAERS Safety Report 4492975-X (Version None)
Quarter: 2004Q4

REPORT INFORMATION
  Report Type: 
  Country: None (occurrence: None)
  Receive Date: 20041102
  Receipt Date: 20041019
  Transmission Date: 20050328
  Serious: Yes (Other)
  Sender: FDA-Public Use
  Company Number: 2004-UK-01057UK

PATIENT
  Age: 84 Year
  Sex: Female

DRUGS (8)
  1. SPIRIVA [Suspect]
     Indication: CHRONIC OBSTRUCTIVE AIRWAYS DISEASE
     Dosage: 18MCG DAILY (18 MCG)  IH
     Route: 055
  2. ACETAMINOPHEN [Concomitant]
  3. CALCICHEW D3 (LEKOVIT CA) [Concomitant]
  4. CYCLIZINE [Concomitant]
  5. ST. JOHNS WORT (HYPERICUM PERFORATUM) [Concomitant]
  6. IPATROPIUM BROMIDE [Concomitant]
  7. BECLOMETHASONE DIPROPIONATE [Concomitant]
  8. SALAMOL (SALBUTAMOL SULFATE) [Concomitant]

REACTIONS (1)
  - DEVICE FAILURE [None]
